FAERS Safety Report 7291554-9 (Version None)
Quarter: 2011Q1

REPORT INFORMATION
  Report Type: 
  Country: None (occurrence: None)
  Receive Date: 20110214
  Receipt Date: 20110131
  Transmission Date: 20110831
  Serious: Yes (Other)
  Sender: FDA-Public Use
  Company Number: PHHY2011US07265

PATIENT
  Age: 75 Year
  Sex: Male
  Weight: 98.866 kg

DRUGS (6)
  1. METOPROLOL [Concomitant]
     Dosage: 100 MG, QD
  2. TASIGNA [Suspect]
     Dosage: 200 MG PER DAY 4 TIMES A WEEK
     Route: 048
  3. TASIGNA [Suspect]
     Indication: CHRONIC MYELOID LEUKAEMIA
     Dosage: 400 MG, UNK
     Route: 048
     Dates: start: 20100720, end: 20110125
  4. FUROSEMIDE [Concomitant]
     Dosage: 60 MG, BID
  5. ASPIRIN [Concomitant]
  6. COUMADIN [Concomitant]

REACTIONS (8)
  - ASCITES [None]
  - DYSPNOEA [None]
  - CARDIAC FAILURE CONGESTIVE [None]
  - PULMONARY OEDEMA [None]
  - WEIGHT INCREASED [None]
  - ATRIAL FIBRILLATION [None]
  - FLUID OVERLOAD [None]
  - OEDEMA PERIPHERAL [None]
